FAERS Safety Report 18098265 (Version 1)
Quarter: 2020Q3

REPORT INFORMATION
  Report Type: Spontaneous
  Country: TR (occurrence: TR)
  Receive Date: 20200731
  Receipt Date: 20200731
  Transmission Date: 20201103
  Serious: Yes (Hospitalization)
  Sender: FDA-Public Use
  Company Number: TR-ASTRAZENECA-2020SE94725

PATIENT
  Age: 56 Year
  Sex: Female

DRUGS (2)
  1. FORZIGA [Suspect]
     Active Substance: DAPAGLIFLOZIN
     Route: 048
  2. INSULINE [Concomitant]
     Active Substance: INSULIN NOS

REACTIONS (1)
  - Diabetic ketoacidosis [Unknown]
